FAERS Safety Report 8633005 (Version 3)
Quarter: 2012Q4

REPORT INFORMATION
  Report Type: 
  Country: US (occurrence: US)
  Receive Date: 20120625
  Receipt Date: 20120928
  Transmission Date: 20130627
  Serious: Yes (Other)
  Sender: FDA-Public Use
  Company Number: US-GLAXOSMITHKLINE-A0982161A

PATIENT
  Age: 55 Year
  Sex: Female

DRUGS (3)
  1. PAXIL [Suspect]
     Indication: DEPRESSION
     Dosage: 20MG Unknown
     Route: 048
     Dates: start: 200401, end: 201006
  2. PAXIL CR [Suspect]
     Dosage: 25MG Unknown
     Route: 065
  3. PAROXETINE HYDROCHLORIDE [Suspect]
     Indication: DEPRESSION
     Dosage: 20MG Unknown
     Route: 048
     Dates: start: 2007, end: 201006

REACTIONS (4)
  - Aortic valve incompetence [Not Recovered/Not Resolved]
  - Mitral valve incompetence [Unknown]
  - Mitral valve stenosis [Unknown]
  - Cardiac failure congestive [Unknown]
